FAERS Safety Report 8591353 (Version 5)
Quarter: 2016Q3

REPORT INFORMATION
  Report Type: Spontaneous
  Country: US (occurrence: US)
  Receive Date: 20120601
  Receipt Date: 20160804
  Transmission Date: 20161109
  Serious: Yes (Disabling, Other)
  Sender: FDA-Public Use
  Company Number: US-JNJFOC-20120519569

PATIENT
  Age: 46 Year
  Sex: Female
  Weight: 103.42 kg

DRUGS (14)
  1. PREDNISONE. [Suspect]
     Active Substance: PREDNISONE
     Indication: ASTHMA
     Dosage: STOPPED IN DEC
     Route: 048
     Dates: start: 20100717
  2. PREDNISONE. [Suspect]
     Active Substance: PREDNISONE
     Indication: LUNG INFECTION
     Dosage: STOPPED IN DEC
     Route: 048
     Dates: start: 20100717
  3. LEVAQUIN [Suspect]
     Active Substance: LEVOFLOXACIN
     Indication: LOWER RESPIRATORY TRACT INFECTION VIRAL
     Route: 048
     Dates: start: 20100717, end: 20100723
  4. JANUVIA [Concomitant]
     Active Substance: SITAGLIPTIN PHOSPHATE
     Indication: TYPE 2 DIABETES MELLITUS
     Route: 065
  5. LEVAQUIN [Suspect]
     Active Substance: LEVOFLOXACIN
     Indication: LOWER RESPIRATORY TRACT INFECTION VIRAL
     Route: 048
     Dates: start: 20070901
  6. PREDNISONE. [Suspect]
     Active Substance: PREDNISONE
     Indication: PAIN
     Dosage: STOPPED IN DEC
     Route: 048
     Dates: start: 20100717
  7. LEVAQUIN [Suspect]
     Active Substance: LEVOFLOXACIN
     Indication: PNEUMONIA
     Route: 048
     Dates: start: 20080117
  8. LEVAQUIN [Suspect]
     Active Substance: LEVOFLOXACIN
     Indication: LOWER RESPIRATORY TRACT INFECTION VIRAL
     Route: 048
     Dates: start: 20080117
  9. LEVAQUIN [Suspect]
     Active Substance: LEVOFLOXACIN
     Indication: PNEUMONIA
     Route: 048
     Dates: start: 20100717, end: 20100723
  10. LEVAQUIN [Suspect]
     Active Substance: LEVOFLOXACIN
     Indication: PNEUMONIA
     Route: 048
     Dates: start: 20070901
  11. MIRAPEX [Concomitant]
     Active Substance: PRAMIPEXOLE DIHYDROCHLORIDE
     Indication: PRODUCT USED FOR UNKNOWN INDICATION
     Route: 065
  12. PROTONIX [Concomitant]
     Active Substance: PANTOPRAZOLE SODIUM
     Indication: PRODUCT USED FOR UNKNOWN INDICATION
     Route: 065
  13. LAMICTAL [Concomitant]
     Active Substance: LAMOTRIGINE
     Indication: MOOD SWINGS
     Route: 065
  14. LYRICA [Concomitant]
     Active Substance: PREGABALIN
     Indication: FIBROMYALGIA
     Route: 065

REACTIONS (25)
  - Tendon rupture [Unknown]
  - Insomnia [Unknown]
  - Dyspnoea [Unknown]
  - Local swelling [Recovered/Resolved]
  - Hypoxia [Unknown]
  - Swollen tongue [Recovered/Resolved]
  - Neuropathy peripheral [Unknown]
  - Pharyngeal oedema [Unknown]
  - Inflammation [Unknown]
  - Musculoskeletal injury [Unknown]
  - Affective disorder [Unknown]
  - Rash [Recovered/Resolved]
  - Weight increased [Not Recovered/Not Resolved]
  - Cardiovascular disorder [Unknown]
  - Lip swelling [Not Recovered/Not Resolved]
  - Adverse drug reaction [Unknown]
  - Asthenia [Unknown]
  - Paraesthesia [Unknown]
  - Abasia [Unknown]
  - Swelling face [Recovered/Resolved]
  - Tendonitis [Unknown]
  - Rotator cuff syndrome [Unknown]
  - Hypoaesthesia [Unknown]
  - Disability [Unknown]
  - Mouth swelling [Unknown]

NARRATIVE: CASE EVENT DATE: 2010
